FAERS Safety Report 7783108-2 (Version None)
Quarter: 2011Q3

REPORT INFORMATION
  Report Type: 
  Country: None (occurrence: None)
  Receive Date: 20110928
  Receipt Date: 20110913
  Transmission Date: 20111222
  Serious: Yes (Other)
  Sender: FDA-Public Use
  Company Number: PHHY2011BR82465

PATIENT
  Sex: Male

DRUGS (5)
  1. ASPIRIN [Suspect]
     Dosage: 200 MG, DAILY
  2. DILTIAZEM HCL [Suspect]
     Dosage: UNK UKN, UNK
  3. HYDROCHLOROTHIAZIDE [Suspect]
     Dosage: 25 MG, DAILY
  4. DILTIAZEM HCL [Suspect]
     Dosage: 90 MG,DAILY
  5. DIOVAN [Suspect]
     Indication: HYPERTENSION
     Dosage: 320 MG, DAILY

REACTIONS (18)
  - DIABETES MELLITUS [None]
  - MITRAL VALVE INCOMPETENCE [None]
  - HYPOKINESIA [None]
  - AORTIC VALVE INCOMPETENCE [None]
  - TRICUSPID VALVE INCOMPETENCE [None]
  - GENERAL PHYSICAL HEALTH DETERIORATION [None]
  - BLOOD PRESSURE SYSTOLIC DECREASED [None]
  - ARTERIAL DISORDER [None]
  - DYSPNOEA EXERTIONAL [None]
  - BLOOD PRESSURE SYSTOLIC INCREASED [None]
  - HYPOTHYROIDISM [None]
  - LEFT VENTRICULAR HYPERTROPHY [None]
  - CHEST PAIN [None]
  - AORTIC STENOSIS [None]
  - DIASTOLIC DYSFUNCTION [None]
  - VOLUME BLOOD INCREASED [None]
  - CORONARY ARTERY DISEASE [None]
  - FATIGUE [None]
